FAERS Safety Report 9909177 (Version 2)
Quarter: 2014Q1

REPORT INFORMATION
  Report Type: Spontaneous
  Country: DE (occurrence: DE)
  Receive Date: 20140219
  Receipt Date: 20140317
  Transmission Date: 20141002
  Serious: Yes (Other)
  Sender: FDA-Public Use
  Company Number: DE-TEVA-462330GER

PATIENT
  Sex: Male

DRUGS (3)
  1. BISOPROLOL-RATIOPHARM 3.75 MG TABLETTEN [Suspect]
     Route: 048
     Dates: start: 2014
  2. BISOPROLOL-RATIOPHARM 3.75 MG TABLETTEN [Suspect]
     Route: 048
     Dates: start: 2003
  3. DIAZEPAM RATIOPHARM 10 MG/ML TROPFEN [Suspect]
     Indication: INITIAL INSOMNIA
     Dosage: 20 GTT DAILY;
     Route: 048
     Dates: start: 2010, end: 201302

REACTIONS (6)
  - Systemic lupus erythematosus [Not Recovered/Not Resolved]
  - Tinnitus [Not Recovered/Not Resolved]
  - Myalgia [Not Recovered/Not Resolved]
  - Osteoarthritis [Not Recovered/Not Resolved]
  - Gastrointestinal disorder [Not Recovered/Not Resolved]
  - Peripheral coldness [Not Recovered/Not Resolved]
